FAERS Safety Report 21716052 (Version 2)
Quarter: 2023Q1

REPORT INFORMATION
  Report Type: Spontaneous
  Country: JP (occurrence: JP)
  Receive Date: 20221212
  Receipt Date: 20230201
  Transmission Date: 20230418
  Serious: Yes (Other)
  Sender: FDA-Public Use
  Company Number: JP-TAKEDA-2022TJP078617

PATIENT
  Age: 82 Year
  Sex: Male
  Weight: 60.7 kg

DRUGS (13)
  1. LEUPLIN [Suspect]
     Active Substance: LEUPROLIDE ACETATE
     Indication: Prostate cancer
     Dosage: 22.5 MILLIGRAM, Q6MONTHS
     Route: 058
     Dates: start: 202204, end: 20221020
  2. LEUPLIN [Suspect]
     Active Substance: LEUPROLIDE ACETATE
     Dosage: 22.5 MILLIGRAM, Q6MONTHSY??LAST ADMIN DATE: 2022
     Route: 058
     Dates: start: 20220318
  3. NORVASC [Concomitant]
     Active Substance: AMLODIPINE BESYLATE
     Indication: Product used for unknown indication
     Dosage: UNK
     Route: 065
  4. NORVASC [Concomitant]
     Active Substance: AMLODIPINE BESYLATE
     Indication: Product used for unknown indication
     Dosage: UNK
     Route: 065
  5. OLMESARTAN MEDOXOMIL [Suspect]
     Active Substance: OLMESARTAN MEDOXOMIL
     Indication: Hypertension
     Dosage: 20 MILLIGRAM, QD
     Route: 048
     Dates: start: 20220322, end: 20220516
  6. OLMESARTAN MEDOXOMIL [Suspect]
     Active Substance: OLMESARTAN MEDOXOMIL
     Indication: Hypertension
     Dosage: UNK
     Route: 065
  7. OLMESARTAN MEDOXOMIL [Suspect]
     Active Substance: OLMESARTAN MEDOXOMIL
     Indication: Hypertension
     Dosage: 40 MILLIGRAM, QD
     Route: 048
     Dates: start: 20220517, end: 20221121
  8. OLMESARTAN MEDOXOMIL [Suspect]
     Active Substance: OLMESARTAN MEDOXOMIL
     Indication: Hypertension
     Dosage: 10 MILLIGRAM, QD
     Route: 048
     Dates: start: 20220222, end: 20220321
  9. AMLODIPINE BESYLATE [Concomitant]
     Active Substance: AMLODIPINE BESYLATE
     Indication: Hypertension
     Dosage: 10 MILLIGRAM, QD
     Route: 048
  10. BETAHISTINE MESILATE [Concomitant]
     Active Substance: BETAHISTINE MESILATE
     Indication: Dizziness
     Dosage: TIME INTERVAL: 0.33333333 DAYS: 6 MILLIGRAM, TID
     Route: 048
     Dates: start: 20220617, end: 20220621
  11. LIVALO [Concomitant]
     Active Substance: PITAVASTATIN CALCIUM
     Indication: Dyslipidaemia
     Dosage: 2 MILLIGRAM, QD
     Route: 048
  12. IMIDAPRIL HYDROCHLORIDE TCK [Concomitant]
     Indication: Hypertension
     Dosage: 10 MILLIGRAM, QD
     Route: 048
     Dates: start: 20221122
  13. IMIDAPRIL HYDROCHLORIDE TCK [Concomitant]
     Indication: Hypertension
     Dosage: 10 MILLIGRAM, QD
     Route: 048
     Dates: end: 20220221

REACTIONS (1)
  - Hepatic function abnormal [Not Recovered/Not Resolved]

NARRATIVE: CASE EVENT DATE: 20220920
